FAERS Safety Report 5408417-3 (Version None)
Quarter: 2007Q3

REPORT INFORMATION
  Report Type: 
  Country: None (occurrence: None)
  Receive Date: 20070806
  Receipt Date: 20070725
  Transmission Date: 20080115
  Serious: Yes (Hospitalization)
  Sender: FDA-Public Use
  Company Number: 2007BI006725

PATIENT
  Age: 58 Year
  Sex: Female

DRUGS (6)
  1. AVONEX [Suspect]
     Indication: MULTIPLE SCLEROSIS
     Dosage: 15 UG;QW;IM
     Route: 042
     Dates: start: 20050818
  2. DETROL [Concomitant]
  3. NAPROXEN [Concomitant]
  4. CHLORELLA [Concomitant]
  5. CENTRUM SILVER [Concomitant]
  6. IRON [Concomitant]

REACTIONS (1)
  - VOLVULUS [None]
